FAERS Safety Report 16050528 (Version 2)
Quarter: 2019Q2

REPORT INFORMATION
  Report Type: Spontaneous
  Country: DE (occurrence: DE)
  Receive Date: 20190308
  Receipt Date: 20190402
  Transmission Date: 20190711
  Serious: Yes (Hospitalization)
  Sender: FDA-Public Use
  Company Number: DE-TEVA-2019-DE-1019719

PATIENT
  Age: 72 Year
  Sex: Male

DRUGS (2)
  1. ULTRAVIST [Concomitant]
     Active Substance: IOPROMIDE
     Indication: ANGIOGRAM
  2. HEPARIN-NATRIUM LEO 25.000 I.E./ML INJEKTIONSL?SUNG [Suspect]
     Active Substance: HEPARIN SODIUM
     Indication: ANGIOGRAM
     Route: 013
     Dates: start: 20190206

REACTIONS (4)
  - Stent placement [Not Recovered/Not Resolved]
  - Peripheral artery thrombosis [Not Recovered/Not Resolved]
  - Angioplasty [Not Recovered/Not Resolved]
  - Therapeutic product effect decreased [Not Recovered/Not Resolved]

NARRATIVE: CASE EVENT DATE: 20190206
